FAERS Safety Report 13676640 (Version 1)
Quarter: 2017Q2

REPORT INFORMATION
  Report Type: Spontaneous
  Country: US (occurrence: US)
  Receive Date: 20170622
  Receipt Date: 20170622
  Transmission Date: 20170830
  Serious: No
  Sender: FDA-Public Use
  Company Number: US-PFIZER INC-2017271506

PATIENT
  Sex: Female

DRUGS (2)
  1. XELJANZ XR [Suspect]
     Active Substance: TOFACITINIB CITRATE
     Dosage: 11 MG, 1X/DAY
  2. PREDNISONE. [Concomitant]
     Active Substance: PREDNISONE
     Dosage: UNK

REACTIONS (8)
  - Fatigue [Unknown]
  - Stress [Unknown]
  - Arthralgia [Unknown]
  - Insomnia [Unknown]
  - Muscular weakness [Unknown]
  - Joint stiffness [Unknown]
  - Joint swelling [Unknown]
  - Musculoskeletal stiffness [Unknown]
